FAERS Safety Report 5632797-7 (Version None)
Quarter: 2008Q1

REPORT INFORMATION
  Report Type: 
  Country: None (occurrence: None)
  Receive Date: 20080221
  Receipt Date: 20080130
  Transmission Date: 20080703
  Serious: No
  Sender: FDA-Public Use
  Company Number: US-JNJFOC-20080202126

PATIENT
  Age: 40 Year
  Sex: Female

DRUGS (4)
  1. INVEGA [Suspect]
     Indication: BIPOLAR DISORDER
     Route: 048
  2. LEXAPRO [Concomitant]
     Route: 048
  3. CAMPRAL [Concomitant]
     Route: 048
  4. DEPAKOTE [Concomitant]
     Route: 048

REACTIONS (1)
  - PSYCHOMOTOR SKILLS IMPAIRED [None]
